FAERS Safety Report 8416940-2 (Version None)
Quarter: 2012Q2

REPORT INFORMATION
  Report Type: 
  Country: None (occurrence: None)
  Receive Date: 20120606
  Receipt Date: 20120531
  Transmission Date: 20120825
  Serious: Yes (Other)
  Sender: FDA-Public Use
  Company Number: US-PFIZER INC-2012131737

PATIENT
  Sex: Female
  Weight: 53.515 kg

DRUGS (5)
  1. GABAPENTIN [Concomitant]
     Indication: BURNING SENSATION
  2. GABAPENTIN [Concomitant]
     Indication: POLYMYALGIA RHEUMATICA
     Dosage: 100 MG, 2X/DAY
  3. PREMARIN [Suspect]
     Indication: BLOOD OESTROGEN DECREASED
     Dosage: 1.25 MG, DAILY
     Dates: start: 19700101, end: 20120101
  4. OMEPRAZOLE [Concomitant]
     Indication: HYPERCHLORHYDRIA
     Dosage: 20 MG, DAILY
  5. ESTRADIOL [Suspect]
     Indication: BLOOD OESTROGEN DECREASED
     Dosage: 1 MG, DAILY
     Dates: start: 20120401

REACTIONS (9)
  - HOT FLUSH [None]
  - CRYING [None]
  - NIGHT SWEATS [None]
  - NERVOUS SYSTEM DISORDER [None]
  - ASTHENIA [None]
  - VISUAL IMPAIRMENT [None]
  - DRUG DISPENSING ERROR [None]
  - DIZZINESS [None]
  - ACTIVITIES OF DAILY LIVING IMPAIRED [None]
